FAERS Safety Report 12430171 (Version 1)
Quarter: 2016Q2

REPORT INFORMATION
  Report Type: Spontaneous
  Country: US (occurrence: US)
  Receive Date: 20160602
  Receipt Date: 20160602
  Transmission Date: 20160815
  Serious: Yes (Hospitalization)
  Sender: FDA-Public Use
  Company Number: US-DSJP-DSU-2015-118413

PATIENT
  Sex: Female
  Weight: 113.38 kg

DRUGS (5)
  1. BENICAR [Suspect]
     Active Substance: OLMESARTAN MEDOXOMIL
     Indication: HYPERTENSION
     Dosage: 5 UNK, UNK
     Dates: start: 2005, end: 201411
  2. BENICAR HCT [Suspect]
     Active Substance: HYDROCHLOROTHIAZIDE\OLMESARTAN MEDOXOMIL
     Indication: HYPERTENSION
     Dosage: UNK
     Dates: start: 2008
  3. BENICAR HCT [Suspect]
     Active Substance: HYDROCHLOROTHIAZIDE\OLMESARTAN MEDOXOMIL
     Dosage: 20/12.5MG
     Dates: start: 2005, end: 201411
  4. BENICAR [Suspect]
     Active Substance: OLMESARTAN MEDOXOMIL
     Dosage: 20 MG, UNK
     Dates: start: 2005, end: 201411
  5. HYDROCHLOROTHIAZIDE. [Concomitant]
     Active Substance: HYDROCHLOROTHIAZIDE
     Dosage: 12.5 MG, UNK

REACTIONS (12)
  - Haemorrhoids [Unknown]
  - Acquired oesophageal web [Unknown]
  - Gastrooesophageal reflux disease [Unknown]
  - Gastrointestinal injury [Unknown]
  - Chronic gastritis [Unknown]
  - Malabsorption [Unknown]
  - Diverticulum [Unknown]
  - Oesophagitis [Unknown]
  - Hiatus hernia [Unknown]
  - Colon neoplasm [Unknown]
  - Nephrolithiasis [Unknown]
  - Duodenitis [Unknown]

NARRATIVE: CASE EVENT DATE: 2006
